FAERS Safety Report 5885259-6 (Version None)
Quarter: 2008Q3

REPORT INFORMATION
  Report Type: 
  Country: None (occurrence: None)
  Receive Date: 20080916
  Receipt Date: 20080904
  Transmission Date: 20090109
  Serious: Yes (Other)
  Sender: FDA-Public Use
  Company Number: US-PFIZER INC-2008066016

PATIENT
  Sex: Female
  Weight: 45.4 kg

DRUGS (9)
  1. CHANTIX [Suspect]
     Indication: SMOKING CESSATION THERAPY
     Dates: start: 20080628, end: 20080101
  2. SYNTHROID [Concomitant]
  3. NEXIUM [Concomitant]
  4. ASPIRIN [Concomitant]
  5. SECTRAL [Concomitant]
  6. NORVASC [Concomitant]
  7. CALCIUM [Concomitant]
  8. FIBRE, DIETARY [Concomitant]
  9. CRANBERRY [Concomitant]

REACTIONS (1)
  - HALLUCINATION, AUDITORY [None]
